FAERS Safety Report 5218468-X (Version None)
Quarter: 2007Q1

REPORT INFORMATION
  Report Type: 
  Country: None (occurrence: None)
  Receive Date: 20061201
  Receipt Date: 20060324
  Transmission Date: 20070707
  Serious: Yes (Other)
  Sender: FDA-Public Use
  Company Number: SUS1-2006-00337

PATIENT
  Age: 8 Year
  Sex: Male
  Weight: 31.7 kg

DRUGS (4)
  1. ADDERALL XR 10 [Suspect]
     Indication: ATTENTION DEFICIT/HYPERACTIVITY DISORDER
     Dosage: 10 MG, 1X/DAY:QD, 10 MG, 1X/DAY:QD
     Dates: start: 20060201, end: 20060201
  2. ADDERALL XR 10 [Suspect]
     Indication: ATTENTION DEFICIT/HYPERACTIVITY DISORDER
     Dosage: 10 MG, 1X/DAY:QD, 10 MG, 1X/DAY:QD
     Dates: start: 20060313
  3. ZYRTEC [Concomitant]
  4. ALLERGY SHOT [Concomitant]

REACTIONS (1)
  - CONVULSION [None]
